FAERS Safety Report 11267652 (Version 1)
Quarter: 2015Q3

REPORT INFORMATION
  Report Type: Spontaneous
  Country: US (occurrence: US)
  Receive Date: 20150713
  Receipt Date: 20150713
  Transmission Date: 20151125
  Serious: Yes (Other)
  Sender: FDA-Public Use
  Company Number: US-GLAXOSMITHKLINE-US2015GSK099527

PATIENT
  Sex: Male

DRUGS (1)
  1. VOTRIENT [Suspect]
     Active Substance: PAZOPANIB HYDROCHLORIDE
     Indication: RENAL CANCER
     Dosage: 800 MG, QD
     Route: 048
     Dates: start: 20150612

REACTIONS (10)
  - Abasia [Unknown]
  - Neoplasm [Unknown]
  - Ageusia [Unknown]
  - Dysgeusia [Unknown]
  - Impaired driving ability [Unknown]
  - Pain in extremity [Unknown]
  - Oral discomfort [Unknown]
  - Oral pain [Unknown]
  - Decreased appetite [Unknown]
  - Medication error [Unknown]
